FAERS Safety Report 20163952 (Version 3)
Quarter: 2021Q4

REPORT INFORMATION
  Report Type: Report from Study
  Country: PE (occurrence: PE)
  Receive Date: 20211209
  Receipt Date: 20211216
  Transmission Date: 20220303
  Serious: Yes (Other)
  Sender: FDA-Public Use
  Company Number: PE-NOVARTISPH-NVSC2021PE257706

PATIENT
  Age: 10 Year
  Sex: Male
  Weight: 42 kg

DRUGS (1)
  1. ELTROMBOPAG OLAMINE [Suspect]
     Active Substance: ELTROMBOPAG OLAMINE
     Indication: Immune thrombocytopenia
     Dosage: 25 MG, QD
     Route: 048
     Dates: start: 20210122

REACTIONS (20)
  - Eye haemorrhage [Unknown]
  - Ocular hyperaemia [Recovering/Resolving]
  - Eye swelling [Unknown]
  - Platelet count decreased [Unknown]
  - Syncope [Unknown]
  - Haemoglobin decreased [Unknown]
  - Contusion [Unknown]
  - Feeling of despair [Unknown]
  - Petechiae [Unknown]
  - Pain in extremity [Unknown]
  - Infection [Unknown]
  - White blood cell disorder [Unknown]
  - Eye infection [Unknown]
  - Asthenia [Unknown]
  - Fatigue [Unknown]
  - Product dose omission issue [Unknown]
  - Melanocytic naevus [Unknown]
  - Erythema [Unknown]
  - Swelling face [Unknown]
  - Fall [Unknown]

NARRATIVE: CASE EVENT DATE: 20211001
